FAERS Safety Report 4601693-6 (Version None)
Quarter: 2005Q1

REPORT INFORMATION
  Report Type: 
  Country: None (occurrence: None)
  Receive Date: 20050131
  Receipt Date: 20041122
  Transmission Date: 20050727
  Serious: Yes (Hospitalization, Other)
  Sender: FDA-Public Use
  Company Number: 200418413US

PATIENT
  Age: 78 Year
  Sex: Male

DRUGS (3)
  1. KETEK [Suspect]
  2. MESTINON [Concomitant]
  3. INFLUENZA VIRUS VACCINE POLYVALENT (FLU SHOT) [Concomitant]

REACTIONS (3)
  - DYSPNOEA [None]
  - MYASTHENIA GRAVIS [None]
  - RESPIRATORY FAILURE [None]
